FAERS Safety Report 6170230-X (Version None)
Quarter: 2009Q2

REPORT INFORMATION
  Report Type: 
  Country: None (occurrence: None)
  Receive Date: 20090427
  Receipt Date: 20090427
  Transmission Date: 20091009
  Serious: Yes (Other)
  Sender: FDA-Public Use
  Company Number: None

PATIENT
  Sex: Female
  Weight: 90.7194 kg

DRUGS (1)
  1. PROAIR HFA [Suspect]
     Indication: COUGH
     Dosage: TWO PUFFS Q 6 HRS PRN INHALE
     Route: 055
     Dates: start: 20090325

REACTIONS (5)
  - APHONIA [None]
  - IMPAIRED WORK ABILITY [None]
  - LARYNGITIS [None]
  - THERMAL BURN [None]
  - VOCAL CORD DISORDER [None]
